FAERS Safety Report 19470158 (Version 3)
Quarter: 2021Q4

REPORT INFORMATION
  Report Type: Spontaneous
  Country: US (occurrence: US)
  Receive Date: 20210629
  Receipt Date: 20211203
  Transmission Date: 20220303
  Serious: Yes (Other)
  Sender: FDA-Public Use
  Company Number: GB-ADVANZ PHARMA-202105004425

PATIENT

DRUGS (3)
  1. DIGOXIN [Suspect]
     Active Substance: DIGOXIN
     Indication: Atrial fibrillation
     Dosage: 0.125 MG, QD
  2. DIGOXIN [Suspect]
     Active Substance: DIGOXIN
     Dosage: 0.250 MG, QD (DOUBLING OF DIGOXIN DOSE)
  3. AMIODARONE [Suspect]
     Active Substance: AMIODARONE
     Indication: Atrial fibrillation
     Dosage: 300 MG, BID

REACTIONS (3)
  - Toxicity to various agents [Unknown]
  - Visual impairment [Recovering/Resolving]
  - Dyschromatopsia [Recovering/Resolving]
